FAERS Safety Report 17214504 (Version 3)
Quarter: 2020Q1

REPORT INFORMATION
  Report Type: Spontaneous
  Country: PG (occurrence: PG)
  Receive Date: 20191230
  Receipt Date: 20200113
  Transmission Date: 20200409
  Serious: Yes (Death, Life-Threatening, Hospitalization, Other)
  Sender: FDA-Public Use
  Company Number: PG-JNJFOC-20191239155

PATIENT
  Age: 20 Year
  Sex: Female
  Weight: 42 kg

DRUGS (8)
  1. CLOFAZIMINE [Interacting]
     Active Substance: CLOFAZIMINE
     Indication: TUBERCULOSIS
     Route: 048
     Dates: start: 20191107, end: 20191120
  2. LINEZOLID. [Interacting]
     Active Substance: LINEZOLID
     Indication: TUBERCULOSIS
     Route: 048
     Dates: start: 20191107, end: 20191120
  3. BEDAQUILINE [Suspect]
     Active Substance: BEDAQUILINE
     Indication: TUBERCULOSIS
     Route: 048
     Dates: start: 20191107, end: 20191120
  4. CLOFAZIMINE [Interacting]
     Active Substance: CLOFAZIMINE
     Route: 048
     Dates: start: 20191203
  5. LINEZOLID. [Interacting]
     Active Substance: LINEZOLID
     Route: 048
     Dates: start: 20191203
  6. LEVOFLOXACIN. [Interacting]
     Active Substance: LEVOFLOXACIN
     Route: 048
     Dates: start: 20191203
  7. BEDAQUILINE [Interacting]
     Active Substance: BEDAQUILINE
     Route: 048
     Dates: start: 20191203
  8. LEVOFLOXACIN. [Interacting]
     Active Substance: LEVOFLOXACIN
     Indication: TUBERCULOSIS
     Route: 048
     Dates: start: 20191107, end: 20191120

REACTIONS (9)
  - Syncope [Unknown]
  - Dyspnoea [Fatal]
  - Sepsis [Recovered/Resolved]
  - Electrocardiogram QT prolonged [Recovered/Resolved]
  - Microcytic anaemia [Recovered/Resolved]
  - Cardiac arrest [Recovered/Resolved]
  - Hypokalaemia [Recovered/Resolved]
  - Transaminases increased [Unknown]
  - Drug interaction [Recovered/Resolved]

NARRATIVE: CASE EVENT DATE: 201911
